FAERS Safety Report 4352542-5 (Version None)
Quarter: 2004Q2

REPORT INFORMATION
  Report Type: 
  Country: None (occurrence: None)
  Receive Date: 20040503
  Receipt Date: 20040503
  Transmission Date: 20050107
  Serious: Yes (Other)
  Sender: FDA-Public Use
  Company Number: None

PATIENT
  Age: 47 Year
  Sex: Male
  Weight: 90.7194 kg

DRUGS (11)
  1. NEURONTIN [Suspect]
     Indication: ANXIETY
     Dosage: 600 MG TID
     Dates: start: 20030101, end: 20040329
  2. NEURONTIN [Suspect]
     Indication: HEAD INJURY
     Dosage: 600 MG TID
     Dates: start: 20030101, end: 20040329
  3. NEURONTIN [Suspect]
     Indication: HEADACHE
     Dosage: 600 MG TID
     Dates: start: 20030101, end: 20040329
  4. NEURONTIN [Suspect]
     Indication: TRAUMATIC BRAIN INJURY
     Dosage: 600 MG TID
     Dates: start: 20030101, end: 20040329
  5. MORPHINE [Suspect]
  6. CLONAZEPAM [Concomitant]
  7. TRAZODONE HCL [Concomitant]
  8. ZOLOFT [Concomitant]
  9. ZYPREXA [Concomitant]
  10. KADIAN [Concomitant]
  11. MOBIC [Concomitant]

REACTIONS (2)
  - CONFUSIONAL STATE [None]
  - DRUG INTERACTION [None]
